FAERS Safety Report 8840712 (Version 1)
Quarter: 2012Q4

REPORT INFORMATION
  Report Type: 
  Country: US (occurrence: US)
  Receive Date: 20121015
  Receipt Date: 20121015
  Transmission Date: 20130627
  Serious: Yes (Hospitalization, Other)
  Sender: FDA-Public Use
  Company Number: US-PFIZER INC-2012251708

PATIENT

DRUGS (3)
  1. ZOSYN [Suspect]
     Indication: CELLULITIS
     Dosage: UNK
  2. RIVAROXABAN [Suspect]
     Indication: CEREBROVASCULAR ACCIDENT PROPHYLAXIS
     Dosage: UNK
     Route: 048
     Dates: start: 201209
  3. RIVAROXABAN [Suspect]
     Indication: ATRIAL FIBRILLATION

REACTIONS (2)
  - Cellulitis [Not Recovered/Not Resolved]
  - International normalised ratio increased [Not Recovered/Not Resolved]
